FAERS Safety Report 18837417 (Version 4)
Quarter: 2021Q4

REPORT INFORMATION
  Report Type: Spontaneous
  Country: JP (occurrence: JP)
  Receive Date: 20210203
  Receipt Date: 20211115
  Transmission Date: 20220303
  Serious: Yes (Other)
  Sender: FDA-Public Use
  Company Number: JP-MTPC-MTPC2021-0002773

PATIENT
  Age: 19 Year
  Sex: Male

DRUGS (12)
  1. REMICADE [Suspect]
     Active Substance: INFLIXIMAB
     Indication: Crohn^s disease
     Dosage: 240 MILLIGRAM, QD
     Route: 042
     Dates: start: 20180726, end: 20190814
  2. REMICADE [Suspect]
     Active Substance: INFLIXIMAB
     Dosage: 240 MILLIGRAM, QD
     Route: 042
     Dates: start: 20191010, end: 20191010
  3. REMICADE [Suspect]
     Active Substance: INFLIXIMAB
     Dosage: UNK
     Route: 042
  4. MESALAMINE [Suspect]
     Active Substance: MESALAMINE
     Indication: Crohn^s disease
     Dosage: 1000 MILLIGRAM, QID?DRUG START PERIOD 842  (DAYS)
     Route: 048
     Dates: start: 20170816
  5. MESALAMINE [Suspect]
     Active Substance: MESALAMINE
     Dosage: 2000 MILLIGRAM, QD?DRUG START PERIOD 842  (DAYS)
     Route: 048
     Dates: start: 20200528
  6. PREDNISOLONE [Concomitant]
     Active Substance: PREDNISOLONE
     Indication: Crohn^s disease
     Dosage: 2 MILLIGRAM, QD
     Route: 048
     Dates: start: 20170816
  7. PREDNISOLONE [Concomitant]
     Active Substance: PREDNISOLONE
     Dosage: UNK
     Route: 048
  8. AMINO ACIDS\CARBOHYDRATES\MINERALS\SOYBEAN OIL\VITAMINS [Concomitant]
     Active Substance: AMINO ACIDS\CARBOHYDRATES\MINERALS\SOYBEAN OIL\VITAMINS
     Indication: Crohn^s disease
     Dosage: 80 GRAM, QD
     Route: 048
     Dates: start: 20170816
  9. IMURAN [Concomitant]
     Active Substance: AZATHIOPRINE
     Indication: Crohn^s disease
     Dosage: 100 MILLIGRAM, BID
     Route: 048
     Dates: start: 20171212, end: 20171218
  10. SULFAMETHOXAZOLE\TRIMETHOPRIM [Concomitant]
     Active Substance: SULFAMETHOXAZOLE\TRIMETHOPRIM
     Dosage: UNK, QD
     Route: 048
     Dates: start: 20171212, end: 20171218
  11. BILASTINE [Concomitant]
     Active Substance: BILASTINE
     Indication: Crohn^s disease
     Dosage: 20 MILLIGRAM, QD
     Route: 048
     Dates: start: 20190221
  12. risedoron [Concomitant]
     Indication: Osteoporosis prophylaxis
     Dosage: 17.5 MILLIGRAM, QD?DRUG START PERIOD 724  (DAYS)
     Route: 048
     Dates: start: 20171212

REACTIONS (1)
  - Tubulointerstitial nephritis [Not Recovered/Not Resolved]

NARRATIVE: CASE EVENT DATE: 20191205
